FAERS Safety Report 10225931 (Version 1)
Quarter: 2014Q2

REPORT INFORMATION
  Report Type: Spontaneous
  Country: US (occurrence: US)
  Receive Date: 20140609
  Receipt Date: 20140609
  Transmission Date: 20141212
  Serious: Yes (Hospitalization)
  Sender: FDA-Public Use
  Company Number: US-ASTELLAS-2013US003756

PATIENT
  Age: 51 Year
  Sex: Male

DRUGS (2)
  1. PROGRAF [Suspect]
     Indication: RENAL TRANSPLANT
     Route: 048
     Dates: start: 20110910, end: 20120322
  2. PROGRAF [Suspect]
     Route: 048

REACTIONS (4)
  - Hypophagia [Unknown]
  - Immunosuppressant drug level increased [Unknown]
  - Lethargy [Unknown]
  - Blood creatinine increased [Unknown]
